FAERS Safety Report 5175812-X (Version None)
Quarter: 2006Q4

REPORT INFORMATION
  Report Type: 
  Country: None (occurrence: None)
  Receive Date: 20061215
  Receipt Date: 20060714
  Transmission Date: 20070319
  Serious: No
  Sender: FDA-Public Use
  Company Number: US-AMGEN-KDL186607

PATIENT
  Sex: Female

DRUGS (2)
  1. ENBREL [Suspect]
     Indication: PSORIATIC ARTHROPATHY
     Route: 058
     Dates: start: 20060630
  2. METHOTREXATE [Concomitant]
     Dates: start: 20051101

REACTIONS (5)
  - DEPRESSION [None]
  - HEADACHE [None]
  - IRRITABILITY [None]
  - NAUSEA [None]
  - TEARFULNESS [None]
